FAERS Safety Report 10080553 (Version 1)
Quarter: 2014Q2

REPORT INFORMATION
  Report Type: Spontaneous
  Country: US (occurrence: US)
  Receive Date: 20140416
  Receipt Date: 20140416
  Transmission Date: 20141212
  Serious: Yes (Other)
  Sender: FDA-Public Use
  Company Number: US-MERCK-1404USA006513

PATIENT
  Sex: 0

DRUGS (1)
  1. REMERON [Suspect]
     Indication: EAR PAIN
     Dosage: UNK
     Route: 048

REACTIONS (3)
  - Deafness [Unknown]
  - Gastric disorder [Unknown]
  - Off label use [Unknown]
